FAERS Safety Report 9234140 (Version 1)
Quarter: 2013Q2

REPORT INFORMATION
  Report Type: Spontaneous
  Country: GR (occurrence: GR)
  Receive Date: 20130416
  Receipt Date: 20130416
  Transmission Date: 20140414
  Serious: Yes (Other)
  Sender: FDA-Public Use
  Company Number: GR-PFIZER INC-2013116566

PATIENT
  Age: 80 Year
  Sex: Male

DRUGS (1)
  1. INSPRA [Suspect]
     Dosage: 25 MG, ALTERNATE DAY

REACTIONS (2)
  - Urinary retention [Recovered/Resolved]
  - Abdominal discomfort [Recovered/Resolved]
